FAERS Safety Report 9263839 (Version 1)
Quarter: 2013Q2

REPORT INFORMATION
  Report Type: Spontaneous
  Country: US (occurrence: None)
  Receive Date: 20130429
  Receipt Date: 20130429
  Transmission Date: 20140414
  Serious: Yes (Hospitalization)
  Sender: FDA-Public Use
  Company Number: None

PATIENT
  Age: 52 Year
  Sex: Male
  Weight: 95.5 kg

DRUGS (1)
  1. PALIPERIDONE [Suspect]
     Indication: SCHIZOAFFECTIVE DISORDER
     Route: 030
     Dates: start: 20130419, end: 20130419

REACTIONS (11)
  - Chest discomfort [None]
  - Dyspnoea [None]
  - Flushing [None]
  - Muscular weakness [None]
  - Hypoaesthesia [None]
  - Hypotension [None]
  - Tachycardia [None]
  - Rash [None]
  - Myalgia [None]
  - Anaphylactic reaction [None]
  - Respiratory depression [None]
